FAERS Safety Report 14372043 (Version 1)
Quarter: 2018Q1

REPORT INFORMATION
  Report Type: Report from Study
  Country: US (occurrence: US)
  Receive Date: 20180110
  Receipt Date: 20180110
  Transmission Date: 20180509
  Serious: Yes (Other)
  Sender: FDA-Public Use
  Company Number: US-TEVA-2018-US-843366

PATIENT
  Sex: Female

DRUGS (1)
  1. COPAXONE [Suspect]
     Active Substance: GLATIRAMER ACETATE
     Indication: MULTIPLE SCLEROSIS
     Route: 058
     Dates: start: 20110905

REACTIONS (6)
  - Erythema [Unknown]
  - Dyspnoea [Unknown]
  - Chest discomfort [Unknown]
  - Chills [Unknown]
  - Swelling face [Unknown]
  - Lip swelling [Unknown]
